FAERS Safety Report 4945888-0 (Version None)
Quarter: 2006Q1

REPORT INFORMATION
  Report Type: 
  Country: None (occurrence: None)
  Receive Date: 20060117
  Receipt Date: 20050104
  Transmission Date: 20060701
  Serious: Yes (Hospitalization)
  Sender: FDA-Public Use
  Company Number: A03200500027

PATIENT
  Age: 71 Year
  Sex: Female

DRUGS (3)
  1. PLAVIX [Suspect]
     Indication: CATHETERISATION CARDIAC
     Dosage: 75 MG QD - ORAL
     Route: 048
     Dates: start: 20041224, end: 20041224
  2. PLAVIX [Suspect]
     Indication: CATHETERISATION CARDIAC
     Dosage: 75 MG QD - ORAL
     Route: 048
     Dates: start: 20041227
  3. EPTIFIBATIDE [Concomitant]

REACTIONS (3)
  - HAEMOGLOBIN DECREASED [None]
  - PELVIC HAEMATOMA [None]
  - RETROPERITONEAL HAEMATOMA [None]
